FAERS Safety Report 4444231-3 (Version None)
Quarter: 2004Q3

REPORT INFORMATION
  Report Type: 
  Country: None (occurrence: None)
  Receive Date: 20040812
  Receipt Date: 20031202
  Transmission Date: 20050211
  Serious: Yes (Hospitalization, Other)
  Sender: FDA-Public Use
  Company Number: USA031050146

PATIENT
  Age: 32 Year
  Sex: Female
  Weight: 70 kg

DRUGS (3)
  1. HUMULIN N [Suspect]
     Indication: DIABETES MELLITUS
     Dosage: 70 U/DAY
     Dates: start: 19900101
  2. HUMULIN R [Suspect]
     Indication: DIABETES MELLITUS
     Dosage: 14 U/IN THE MORNING
     Dates: start: 19900101
  3. ILETIN-PORK NPH INSULIN (INSULIN, ANIMAL) [Suspect]
     Indication: DIABETES MELLITUS
     Dates: start: 19690101, end: 19900101

REACTIONS (4)
  - BLOOD GLUCOSE DECREASED [None]
  - EYE HAEMORRHAGE [None]
  - HYPOTHYROIDISM [None]
  - VISION BLURRED [None]
